FAERS Safety Report 9865937 (Version 2)
Quarter: 2014Q1

REPORT INFORMATION
  Report Type: Spontaneous
  Country: US (occurrence: US)
  Receive Date: 20140203
  Receipt Date: 20140203
  Transmission Date: 20141002
  Serious: No
  Sender: FDA-Public Use
  Company Number: US-ALLERGAN-1312678US

PATIENT
  Sex: Male

DRUGS (16)
  1. RESTASIS [Suspect]
     Indication: DRY EYE
     Dosage: 2 GTT, BID
     Route: 047
     Dates: start: 20130808
  2. REFRESH                            /00007001/ [Concomitant]
     Indication: DRY EYE
     Dosage: UNK
  3. POTASSIUM [Concomitant]
     Indication: PRODUCT USED FOR UNKNOWN INDICATION
     Dosage: UNK
  4. QUINAPRIL [Concomitant]
     Indication: HYPERTENSION
     Dosage: UNK
  5. HYDROCHLOROTHIAZIDE [Concomitant]
     Indication: HYPERTENSION
     Dosage: UNK
  6. WELCHOL [Concomitant]
     Indication: BLOOD CHOLESTEROL INCREASED
     Dosage: UNK
  7. CRESTOR [Concomitant]
     Indication: BLOOD CHOLESTEROL INCREASED
     Dosage: UNK
  8. OMEPRAZOLE [Concomitant]
     Indication: GASTROOESOPHAGEAL REFLUX DISEASE
     Dosage: UNK
  9. METOPROLOL [Concomitant]
     Indication: HEART RATE IRREGULAR
     Dosage: UNK
  10. DILTIAZEM [Concomitant]
     Indication: HEART RATE IRREGULAR
     Dosage: UNK
  11. DIGOXIN [Concomitant]
     Indication: HEART RATE IRREGULAR
     Dosage: UNK
  12. ELIQUIS [Concomitant]
     Indication: ANTICOAGULANT THERAPY
     Dosage: UNK
  13. OMEGA 3                            /01333901/ [Concomitant]
     Indication: SUPPLEMENTATION THERAPY
     Dosage: UNK
  14. CHONDROITON [Concomitant]
     Indication: SUPPLEMENTATION THERAPY
     Dosage: UNK
  15. VIT D [Concomitant]
     Indication: SUPPLEMENTATION THERAPY
     Dosage: UNK
  16. VITAMIN E [Concomitant]
     Indication: SUPPLEMENTATION THERAPY
     Dosage: UNK

REACTIONS (2)
  - Skin odour abnormal [Not Recovered/Not Resolved]
  - Eye irritation [Recovered/Resolved]
